FAERS Safety Report 8257492-X (Version None)
Quarter: 2012Q1

REPORT INFORMATION
  Report Type: 
  Country: None (occurrence: None)
  Receive Date: 20120330
  Receipt Date: 20120330
  Transmission Date: 20120608
  Serious: Yes (Life-Threatening, Disabling)
  Sender: FDA-Public Use
  Company Number: None

PATIENT
  Sex: Female
  Weight: 86.1834 kg

DRUGS (4)
  1. PROLIXIN [Suspect]
  2. RISPERIDOL/ALONZOPIN [Suspect]
     Dosage: 25MG- FRIED ME SHOTS
     Dates: start: 19830101, end: 19840101
  3. DEPAKOTE [Suspect]
  4. HALDOL [Suspect]
     Dosage: 25 MG - 100MG FRIED ME SHOTS
     Dates: start: 19970101, end: 19980101

REACTIONS (6)
  - MENTAL RETARDATION [None]
  - SYNCOPE [None]
  - VISUAL ACUITY REDUCED [None]
  - UNEVALUABLE EVENT [None]
  - UNEMPLOYMENT [None]
  - WEIGHT INCREASED [None]
